FAERS Safety Report 4512968-3 (Version None)
Quarter: 2004Q4

REPORT INFORMATION
  Report Type: 
  Country: None (occurrence: None)
  Receive Date: 20041124
  Receipt Date: 20041116
  Transmission Date: 20050328
  Serious: Yes (Hospitalization)
  Sender: FDA-Public Use
  Company Number: CIP04002458

PATIENT
  Age: 16 Year
  Sex: Male
  Weight: 80 kg

DRUGS (7)
  1. ASACOL [Suspect]
     Indication: CROHN'S DISEASE
     Dosage: 800 MG TWICE DAILY, ORAL
     Route: 048
     Dates: start: 20020101
  2. ACETAMINOPHEN [Concomitant]
  3. TORADOL [Concomitant]
  4. FOLIC ACID [Concomitant]
  5. SOLU-MEDROL [Concomitant]
  6. AZATHIOPRINE [Concomitant]
  7. PROTONIX ^PHARMACIA^ (PANTOPRAZOLE) [Concomitant]

REACTIONS (5)
  - BRADYCARDIA [None]
  - CONDITION AGGRAVATED [None]
  - CROHN'S DISEASE [None]
  - ELECTROCARDIOGRAM T WAVE INVERSION [None]
  - HYPERTENSION [None]
